FAERS Safety Report 5061351-3 (Version None)
Quarter: 2006Q3

REPORT INFORMATION
  Report Type: 
  Country: None (occurrence: None)
  Receive Date: 20060719
  Receipt Date: 20060719
  Transmission Date: 20061208
  Serious: Yes (Hospitalization)
  Sender: FDA-Public Use
  Company Number: None

PATIENT
  Sex: Male
  Weight: 87.3 kg

DRUGS (3)
  1. LISINOPRIL [Suspect]
     Indication: HYPERTENSION
     Dosage: 0 MG DAILY PO
     Route: 048
     Dates: start: 20041026, end: 20060402
  2. SPIRONOLACTONE [Suspect]
     Indication: HYPERTENSION
     Dosage: 25 MG DAILY PO
     Route: 048
     Dates: start: 20040505, end: 20060402
  3. FUROSEMIDE [Suspect]
     Indication: HYPERTENSION
     Dosage: 40 MG DAILY PO
     Route: 048
     Dates: start: 19950330, end: 20060402

REACTIONS (5)
  - ASTHENIA [None]
  - BRADYCARDIA [None]
  - CHEST PAIN [None]
  - HYPERKALAEMIA [None]
  - RENAL FAILURE ACUTE [None]
